FAERS Safety Report 4864507-5 (Version None)
Quarter: 2005Q4

REPORT INFORMATION
  Report Type: 
  Country: None (occurrence: None)
  Receive Date: 20051222
  Receipt Date: 20051213
  Transmission Date: 20060501
  Serious: Yes (Life-Threatening)
  Sender: FDA-Public Use
  Company Number: AU-ROCHE-428555

PATIENT
  Age: 75 Year
  Sex: Male

DRUGS (9)
  1. CEFTRIAXONE [Suspect]
     Indication: DRUG USE FOR UNKNOWN INDICATION
     Route: 042
  2. CITALOPRAM HYDROBROMIDE [Concomitant]
  3. ANTABUSE [Concomitant]
  4. FLIXOTIDE [Concomitant]
  5. SERETIDE [Concomitant]
  6. FLUDROCORTISONE [Concomitant]
  7. LOSEC [Concomitant]
  8. VITAMINS NOS [Concomitant]
  9. THIAMINE [Concomitant]

REACTIONS (5)
  - ACUTE RESPIRATORY DISTRESS SYNDROME [None]
  - BRONCHOSPASM [None]
  - COUGH [None]
  - HYPERTENSION [None]
  - HYPOXIA [None]
